FAERS Safety Report 11156445 (Version 1)
Quarter: 2015Q2

REPORT INFORMATION
  Report Type: Spontaneous
  Country: DE (occurrence: DE)
  Receive Date: 20150602
  Receipt Date: 20150602
  Transmission Date: 20150821
  Serious: Yes (Hospitalization)
  Sender: FDA-Public Use
  Company Number: DE-PFIZER INC-2015182779

PATIENT
  Sex: Male

DRUGS (4)
  1. INSPRA [Suspect]
     Active Substance: EPLERENONE
     Dosage: 50 MG, DAILY
  2. INSPRA [Suspect]
     Active Substance: EPLERENONE
     Dosage: 50 MG, UNK
  3. INSPRA [Suspect]
     Active Substance: EPLERENONE
     Dosage: 50 MG, ALTERNATE DAY
  4. LYRICA [Suspect]
     Active Substance: PREGABALIN
     Indication: POLYNEUROPATHY
     Dosage: 1 X 75 MG

REACTIONS (1)
  - Calciphylaxis [Unknown]
